FAERS Safety Report 9207548 (Version 1)
Quarter: 2013Q2

REPORT INFORMATION
  Report Type: Report from Study
  Country: DE (occurrence: DE)
  Receive Date: 20130403
  Receipt Date: 20130403
  Transmission Date: 20140414
  Serious: Yes (Hospitalization)
  Sender: FDA-Public Use
  Company Number: DE-ROCHE-1207053

PATIENT
  Age: 70 Year
  Sex: Male
  Weight: 133 kg

DRUGS (3)
  1. RITUXIMAB [Suspect]
     Indication: POST TRANSPLANT LYMPHOPROLIFERATIVE DISORDER
     Dosage: LAST DOSE PRIOR TO SAE: 04/MAR/2013
     Route: 042
  2. DIMETINDENE MALEATE [Concomitant]
     Route: 042
  3. RANITIDINE [Concomitant]
     Route: 042

REACTIONS (3)
  - Renal failure acute [Unknown]
  - Hypercalcaemia [Unknown]
  - Tumour lysis syndrome [Unknown]
